FAERS Safety Report 6433450-2 (Version None)
Quarter: 2009Q4

REPORT INFORMATION
  Report Type: 
  Country: None (occurrence: None)
  Receive Date: 20091106
  Receipt Date: 20091106
  Transmission Date: 20100525
  Serious: Yes (Life-Threatening, Hospitalization, Disabling)
  Sender: FDA-Public Use
  Company Number: None

PATIENT
  Sex: Female
  Weight: 78.0187 kg

DRUGS (3)
  1. TEMODAR [Suspect]
     Indication: BRAIN NEOPLASM
     Dosage: 140 MG DAILY 42 DAYS PO 280 MG 1 DOSE ONLY
     Route: 048
     Dates: start: 20090701, end: 20090812
  2. TEMODAR [Suspect]
     Indication: BRAIN NEOPLASM
     Dosage: 140 MG DAILY 42 DAYS PO 280 MG 1 DOSE ONLY
     Route: 048
     Dates: start: 20090915
  3. TEMODAR [Suspect]
     Indication: BRAIN NEOPLASM
     Dosage: 140 MG DAILY 42 DAYS PO 280 MG 1 DOSE ONLY
     Route: 048
     Dates: start: 20091013

REACTIONS (5)
  - ANAPHYLACTIC REACTION [None]
  - DIARRHOEA [None]
  - PNEUMONIA [None]
  - SEPSIS [None]
  - VOMITING [None]
